FAERS Safety Report 22640372 (Version 8)
Quarter: 2023Q4

REPORT INFORMATION
  Report Type: Report from Study
  Country: BD (occurrence: BD)
  Receive Date: 20230626
  Receipt Date: 20231014
  Transmission Date: 20240109
  Serious: Yes (Hospitalization, Other)
  Sender: FDA-Public Use
  Company Number: BD-002147023-NVSC2023BD060579

PATIENT
  Age: 45 Year
  Sex: Male
  Weight: 50 kg

DRUGS (3)
  1. ENTRESTO [Suspect]
     Active Substance: SACUBITRIL\VALSARTAN
     Indication: Cardiac failure chronic
     Dosage: 1 DOSAGE FORM, BID (1 YEAR AND 1 MONTH)
     Route: 065
  2. ENTRESTO [Suspect]
     Active Substance: SACUBITRIL\VALSARTAN
     Dosage: 0.5 DOSAGE FORM, BID (25 MG)
     Route: 048
     Dates: start: 202202, end: 20230331
  3. ENTRESTO [Suspect]
     Active Substance: SACUBITRIL\VALSARTAN
     Dosage: 50 MG, BID (50 MG)
     Route: 048

REACTIONS (23)
  - Transient ischaemic attack [Recovering/Resolving]
  - Dyspnoea exertional [Recovering/Resolving]
  - Pleural effusion [Recovering/Resolving]
  - Chest discomfort [Recovering/Resolving]
  - Ascites [Recovering/Resolving]
  - Urinary tract obstruction [Recovering/Resolving]
  - Urinary retention [Recovering/Resolving]
  - Cardiomyopathy [Recovering/Resolving]
  - Tuberculosis [Recovering/Resolving]
  - Hepatic function abnormal [Recovering/Resolving]
  - Hepatic steatosis [Recovering/Resolving]
  - Insomnia [Recovering/Resolving]
  - Irregular sleep phase [Recovered/Resolved]
  - Stress [Recovered/Resolved]
  - Brain natriuretic peptide abnormal [Recovering/Resolving]
  - Joint swelling [Not Recovered/Not Resolved]
  - Decreased appetite [Not Recovered/Not Resolved]
  - Oedema peripheral [Not Recovered/Not Resolved]
  - Hyperchlorhydria [Not Recovered/Not Resolved]
  - Cough [Recovering/Resolving]
  - Asthenia [Not Recovered/Not Resolved]
  - Wrong technique in product usage process [Unknown]
  - Dysstasia [Unknown]

NARRATIVE: CASE EVENT DATE: 20220201
